FAERS Safety Report 11879089 (Version 2)
Quarter: 2016Q1

REPORT INFORMATION
  Report Type: Report from Study
  Country: UG (occurrence: UG)
  Receive Date: 20151230
  Receipt Date: 20160201
  Transmission Date: 20160526
  Serious: Yes (Hospitalization, Other)
  Sender: FDA-Public Use
  Company Number: UG-BRISTOL-MYERS SQUIBB COMPANY-BMS-2015-091778

PATIENT
  Age: 37 Year
  Sex: Male

DRUGS (5)
  1. ETHAMBUTOL W/ISONIAZID/PYRAZINAMIDE/01301701/ [Concomitant]
     Active Substance: ETHAMBUTOL\ISONIAZID\PYRAZINAMIDE
     Indication: TUBERCULOSIS
     Dosage: 3500 MG, QD
     Route: 048
     Dates: start: 20131128, end: 20140123
  2. COTRIMOXAZOLE [Concomitant]
     Active Substance: SULFAMETHOXAZOLE\TRIMETHOPRIM
     Indication: PROPHYLAXIS
     Dosage: UNK, QD
     Route: 048
     Dates: end: 20151215
  3. EFAVIRENZ [Suspect]
     Active Substance: EFAVIRENZ
     Indication: HIV INFECTION
     Dosage: 600 MG, QD
     Route: 048
     Dates: start: 20131128, end: 20141106
  4. EMTRICITABINE W/TENOFOVIR DISOPROXIL FUMARATE [Concomitant]
     Active Substance: EMTRICITABINE\TENOFOVIR DISOPROXIL
     Indication: HIV INFECTION
     Dosage: 500 MG, QD
     Route: 048
     Dates: start: 20131128, end: 20141106
  5. ISONIAZID W/RIFAMPICIN [Concomitant]
     Active Substance: ISONIAZID\RIFAMPIN
     Indication: TUBERCULOSIS
     Dosage: 900 MG, QD
     Route: 048
     Dates: start: 20140124, end: 20141106

REACTIONS (6)
  - Neck pain [Unknown]
  - Vision blurred [Unknown]
  - Pyrexia [Recovering/Resolving]
  - Bacteraemia [Recovered/Resolved]
  - Headache [Recovering/Resolving]
  - Malaise [Recovering/Resolving]

NARRATIVE: CASE EVENT DATE: 20151215
